FAERS Safety Report 9436985 (Version 3)
Quarter: 2014Q4

REPORT INFORMATION
  Report Type: Spontaneous
  Country: US (occurrence: US)
  Receive Date: 20130802
  Receipt Date: 20141211
  Transmission Date: 20150529
  Serious: Yes (Hospitalization, Other)
  Sender: FDA-Public Use
  Company Number: US-009507513-1206USA02278

PATIENT
  Sex: Female
  Weight: 89.34 kg

DRUGS (9)
  1. ALENDRONATE SODIUM. [Suspect]
     Active Substance: ALENDRONATE SODIUM
     Indication: OSTEOPENIA
     Dosage: 70 MG, UNK
     Dates: start: 20080403, end: 20100529
  2. FOSAMAX PLUS D [Suspect]
     Active Substance: ALENDRONATE SODIUM\CHOLECALCIFEROL
     Dosage: 70 MG/2800 IU, UNK
     Route: 048
  3. FOSAMAX [Suspect]
     Active Substance: ALENDRONATE SODIUM
     Indication: OSTEOPOROSIS
     Dosage: 10 MG, UNK
     Route: 048
     Dates: start: 1995, end: 20001020
  4. FOSAMAX [Suspect]
     Active Substance: ALENDRONATE SODIUM
     Dosage: 70 MG, QW
     Route: 048
     Dates: start: 20001020, end: 20080403
  5. CALCIUM (UNSPECIFIED) [Concomitant]
     Active Substance: CALCIUM
     Dosage: 1500 MG, QD
     Dates: start: 1990
  6. VITAMINS (UNSPECIFIED) [Concomitant]
     Active Substance: VITAMINS
     Dosage: 1 DF, QD
     Dates: start: 1990
  7. IMITREX [Concomitant]
     Active Substance: SUMATRIPTAN\SUMATRIPTAN SUCCINATE
     Indication: MIGRAINE
     Dosage: UNK
     Dates: start: 1986, end: 2000
  8. HORMONES (UNSPECIFIED) [Concomitant]
     Active Substance: UNSPECIFIED INGREDIENT
     Dosage: UNK
     Dates: start: 1978, end: 2004
  9. FOSAMAX [Suspect]
     Active Substance: ALENDRONATE SODIUM
     Indication: OSTEOPOROSIS
     Route: 048

REACTIONS (29)
  - Hypercholesterolaemia [Unknown]
  - Arthritis [Unknown]
  - Back pain [Unknown]
  - Fluid retention [Unknown]
  - Urinary tract infection [Unknown]
  - Blood pressure fluctuation [Unknown]
  - Femur fracture [Unknown]
  - Sedation [Unknown]
  - Gastrooesophageal reflux disease [Unknown]
  - Intramedullary rod insertion [Unknown]
  - Hyponatraemia [Unknown]
  - Femur fracture [Unknown]
  - Adenotonsillectomy [Unknown]
  - Oedema [Unknown]
  - Hypokalaemia [Unknown]
  - Low turnover osteopathy [Unknown]
  - Tendon sheath lesion excision [Unknown]
  - Synovial cyst [Unknown]
  - Cataract [Unknown]
  - Herpes zoster [Unknown]
  - Urinary tract infection [Unknown]
  - Scoliosis [Unknown]
  - Tendon injury [Unknown]
  - Hypovolaemia [Unknown]
  - Haemorrhagic anaemia [Unknown]
  - Vitamin D deficiency [Unknown]
  - Coronary artery disease [Unknown]
  - Arthritis [Unknown]
  - Constipation [Unknown]

NARRATIVE: CASE EVENT DATE: 1999
